FAERS Safety Report 9686215 (Version 1)
Quarter: 2013Q4

REPORT INFORMATION
  Report Type: Report from Study
  Country: CA (occurrence: CA)
  Receive Date: 20131113
  Receipt Date: 20131113
  Transmission Date: 20140711
  Serious: Yes (Other)
  Sender: FDA-Public Use
  Company Number: CA-JNJFOC-20131101668

PATIENT
  Age: 39 Year
  Sex: Male
  Weight: 115.21 kg

DRUGS (1)
  1. STELARA [Suspect]
     Indication: PSORIASIS
     Route: 058
     Dates: start: 201109, end: 201301

REACTIONS (2)
  - Gastric ulcer [Recovered/Resolved]
  - Psoriasis [Unknown]
